FAERS Safety Report 4300252-2 (Version None)
Quarter: 2004Q1

REPORT INFORMATION
  Report Type: 
  Country: None (occurrence: None)
  Receive Date: 20040218
  Receipt Date: 20040203
  Transmission Date: 20041129
  Serious: Yes (Death, Other)
  Sender: FDA-Public Use
  Company Number: CA_020905342

PATIENT
  Age: 90 Year
  Sex: Female

DRUGS (1)
  1. ZYPREXA [Suspect]
     Dosage: 2.5 MG DAY
     Dates: start: 19980903

REACTIONS (1)
  - THROMBOPHLEBITIS [None]
